FAERS Safety Report 17727668 (Version 2)
Quarter: 2021Q1

REPORT INFORMATION
  Report Type: Spontaneous
  Country: US (occurrence: US)
  Receive Date: 20200430
  Receipt Date: 20210222
  Transmission Date: 20210419
  Serious: Yes (Other)
  Sender: FDA-Public Use
  Company Number: US-BAYER-2020-073710

PATIENT
  Age: 18 Year
  Sex: Female
  Weight: 67.12 kg

DRUGS (1)
  1. KYLEENA [Suspect]
     Active Substance: LEVONORGESTREL
     Indication: CONTRACEPTION
     Dosage: 17.5 ?G PER DAY, CONT
     Route: 015
     Dates: start: 20170718, end: 20200622

REACTIONS (4)
  - Drug ineffective [None]
  - Premature rupture of membranes [None]
  - Pregnancy with contraceptive device [None]
  - Premature delivery [None]

NARRATIVE: CASE EVENT DATE: 20200401
